FAERS Safety Report 13675223 (Version 2)
Quarter: 2017Q3

REPORT INFORMATION
  Report Type: Spontaneous
  Country: US (occurrence: US)
  Receive Date: 20170621
  Receipt Date: 20170711
  Transmission Date: 20171127
  Serious: Yes (Death, Other)
  Sender: FDA-Public Use
  Company Number: US-ROCHE-1951356

PATIENT
  Age: 79 Year
  Sex: Female

DRUGS (4)
  1. CIPRO [Interacting]
     Active Substance: CIPROFLOXACIN HYDROCHLORIDE
     Indication: PRODUCT USED FOR UNKNOWN INDICATION
     Route: 065
  2. ESBRIET [Interacting]
     Active Substance: PIRFENIDONE
     Indication: IDIOPATHIC PULMONARY FIBROSIS
     Dosage: 3 CAPSULES 3 TIMES A DAY
     Route: 048
     Dates: start: 201703
  3. ESBRIET [Interacting]
     Active Substance: PIRFENIDONE
     Route: 048
     Dates: start: 20170124, end: 20170619
  4. ESBRIET [Suspect]
     Active Substance: PIRFENIDONE
     Indication: ILL-DEFINED DISORDER
     Route: 048
     Dates: start: 20170121

REACTIONS (3)
  - Drug interaction [Unknown]
  - Pneumonia [Unknown]
  - Death [Fatal]

NARRATIVE: CASE EVENT DATE: 20170619
